FAERS Safety Report 18506558 (Version 1)
Quarter: 2020Q4

REPORT INFORMATION
  Report Type: Spontaneous
  Country: US (occurrence: US)
  Receive Date: 20201112
  Receipt Date: 20201112
  Transmission Date: 20210114
  Serious: Yes (Hospitalization)
  Sender: FDA-Public Use
  Company Number: None

PATIENT
  Age: 62 Year

DRUGS (1)
  1. JARDIANCE [Suspect]
     Active Substance: EMPAGLIFLOZIN
     Route: 048
     Dates: start: 20170301, end: 20201031

REACTIONS (3)
  - Furuncle [None]
  - Necrotising fasciitis [None]
  - Condition aggravated [None]

NARRATIVE: CASE EVENT DATE: 20201029
